FAERS Safety Report 14477062 (Version 1)
Quarter: 2018Q1

REPORT INFORMATION
  Report Type: Report from Study
  Country: US (occurrence: US)
  Receive Date: 20180201
  Receipt Date: 20180201
  Transmission Date: 20180509
  Serious: No
  Sender: FDA-Public Use
  Company Number: US-EXELIXIS-CABO-17009633

PATIENT
  Sex: Male
  Weight: 111.11 kg

DRUGS (14)
  1. LOSARTAN. [Concomitant]
     Active Substance: LOSARTAN
  2. TAMSULOSIN [Concomitant]
     Active Substance: TAMSULOSIN
  3. OXYCODONE AND ACETAMINOPHEN [Concomitant]
     Active Substance: ACETAMINOPHEN\OXYCODONE HYDROCHLORIDE
  4. FINASTERIDE. [Concomitant]
     Active Substance: FINASTERIDE
  5. VECTICAL [Concomitant]
     Active Substance: CALCITRIOL
  6. SIMVASTATIN. [Concomitant]
     Active Substance: SIMVASTATIN
  7. IBUPROFEN. [Concomitant]
     Active Substance: IBUPROFEN
  8. METHOTREXATE. [Concomitant]
     Active Substance: METHOTREXATE
  9. GABAPENTIN. [Concomitant]
     Active Substance: GABAPENTIN
  10. FOLIC ACID. [Concomitant]
     Active Substance: FOLIC ACID
  11. CABOMETYX [Suspect]
     Active Substance: CABOZANTINIB S-MALATE
     Indication: RENAL CELL CARCINOMA
     Dosage: 60 MG, QD
     Route: 048
     Dates: start: 201706
  12. METFORMIN [Concomitant]
     Active Substance: METFORMIN HYDROCHLORIDE
  13. CLOBETASOL [Concomitant]
     Active Substance: CLOBETASOL
  14. VITAMIN B12 [Concomitant]
     Active Substance: CYANOCOBALAMIN

REACTIONS (1)
  - Sinusitis [Unknown]
